FAERS Safety Report 14365656 (Version 2)
Quarter: 2018Q1

REPORT INFORMATION
  Report Type: Report from Study
  Country: US (occurrence: US)
  Receive Date: 20180109
  Receipt Date: 20180111
  Transmission Date: 20180509
  Serious: Yes (Death, Hospitalization)
  Sender: FDA-Public Use
  Company Number: US-ROCHE-2048955

PATIENT
  Age: 73 Year
  Sex: Male
  Weight: 57.2 kg

DRUGS (1)
  1. ESBRIET [Suspect]
     Active Substance: PIRFENIDONE
     Indication: IDIOPATHIC PULMONARY FIBROSIS
     Route: 048
     Dates: start: 20170824, end: 20171222

REACTIONS (3)
  - Oxygen saturation decreased [Unknown]
  - Therapy non-responder [Unknown]
  - Dyspnoea [Unknown]

NARRATIVE: CASE EVENT DATE: 201712
